FAERS Safety Report 12495330 (Version 1)
Quarter: 2016Q2

REPORT INFORMATION
  Report Type: Spontaneous
  Country: US (occurrence: None)
  Receive Date: 20160623
  Receipt Date: 20160623
  Transmission Date: 20160815
  Serious: No
  Sender: FDA-Public Use
  Company Number: None

PATIENT
  Age: 58 Year
  Sex: Female

DRUGS (11)
  1. VICODIN [Concomitant]
     Active Substance: ACETAMINOPHEN\HYDROCODONE BITARTRATE
  2. TOPIRAMATE. [Concomitant]
     Active Substance: TOPIRAMATE
  3. GILENYA [Suspect]
     Active Substance: FINGOLIMOD HYDROCHLORIDE
     Indication: MULTIPLE SCLEROSIS
     Route: 048
     Dates: start: 20141017
  4. LEXAPRO [Concomitant]
     Active Substance: ESCITALOPRAM OXALATE
  5. VITAMIN B12 [Concomitant]
     Active Substance: CYANOCOBALAMIN
  6. LEVOTHYROXIN [Concomitant]
     Active Substance: LEVOTHYROXINE
  7. TOLTERODINE [Concomitant]
     Active Substance: TOLTERODINE
  8. OXYCONTIN [Concomitant]
     Active Substance: OXYCODONE HYDROCHLORIDE
  9. NAPROSYN [Concomitant]
     Active Substance: NAPROXEN
  10. NAPROXEN. [Concomitant]
     Active Substance: NAPROXEN
  11. CYCLOBENZAPR [Concomitant]

REACTIONS (2)
  - Fatigue [None]
  - Vertigo [None]

NARRATIVE: CASE EVENT DATE: 201605
